FAERS Safety Report 5749722-0 (Version None)
Quarter: 2008Q2

REPORT INFORMATION
  Report Type: 
  Country: None (occurrence: None)
  Receive Date: 20080521
  Receipt Date: 20080521
  Transmission Date: 20081010
  Serious: Yes (Life-Threatening, Hospitalization)
  Sender: FDA-Public Use
  Company Number: None

PATIENT
  Age: 61 Year
  Sex: Female
  Weight: 73 kg

DRUGS (1)
  1. RITUXIMAB ROCHE [Suspect]
     Indication: INFUSION RELATED REACTION
     Dosage: PO
     Route: 048
     Dates: start: 20080120, end: 20080120

REACTIONS (3)
  - DISEASE PROGRESSION [None]
  - INFUSION RELATED REACTION [None]
  - LOSS OF CONSCIOUSNESS [None]
